FAERS Safety Report 7653784-3 (Version None)
Quarter: 2011Q3

REPORT INFORMATION
  Report Type: 
  Country: None (occurrence: None)
  Receive Date: 20110803
  Receipt Date: 20110728
  Transmission Date: 20111222
  Serious: Yes (Other)
  Sender: FDA-Public Use
  Company Number: JP-GLAXOSMITHKLINE-B0735869A

PATIENT
  Sex: Male

DRUGS (9)
  1. VALTREX [Suspect]
     Indication: PRODUCT USED FOR UNKNOWN INDICATION
     Dosage: 3000MG PER DAY
     Route: 048
     Dates: start: 20110704
  2. DEXTROMETHORPHAN HYDROBROMIDE [Concomitant]
     Route: 048
  3. HIRUDOID [Concomitant]
     Route: 061
     Dates: start: 20110704, end: 20110704
  4. ARASENA-A [Concomitant]
     Route: 065
     Dates: start: 20110704, end: 20110704
  5. MUCOSTA [Concomitant]
     Route: 048
  6. LOXONIN [Concomitant]
     Route: 065
  7. LEVOFLOXACIN [Concomitant]
     Route: 065
     Dates: start: 20110704, end: 20110704
  8. RINDERON VG [Concomitant]
     Route: 061
     Dates: start: 20110704, end: 20110704
  9. VOLTAREN [Concomitant]
     Route: 061
     Dates: start: 20110704, end: 20110704

REACTIONS (1)
  - SKIN DISORDER [None]
